FAERS Safety Report 6106727-8 (Version None)
Quarter: 2009Q1

REPORT INFORMATION
  Report Type: 
  Country: None (occurrence: None)
  Receive Date: 20090302
  Receipt Date: 20090218
  Transmission Date: 20090719
  Serious: Yes (Death)
  Sender: FDA-Public Use
  Company Number: GXKR2009JP02124

PATIENT
  Age: 63 Year
  Sex: Female

DRUGS (2)
  1. DEXAMETHASONE [Suspect]
     Indication: SYSTEMIC LUPUS ERYTHEMATOSUS
     Dosage: 20 MG/DAY
  2. METHYLPREDNISOLONE        (METHYLPREDNISOLONE) UNKNOWN [Suspect]
     Indication: SYSTEMIC LUPUS ERYTHEMATOSUS
     Dosage: 1000 MG/DAY, INTRAVENOUS
     Route: 042

REACTIONS (3)
  - ADULT T-CELL LYMPHOMA/LEUKAEMIA [None]
  - FLUSHING [None]
  - SEPSIS [None]
